FAERS Safety Report 13718451 (Version 1)
Quarter: 2017Q3

REPORT INFORMATION
  Report Type: Report from Study
  Country: JP (occurrence: JP)
  Receive Date: 20170705
  Receipt Date: 20170705
  Transmission Date: 20171127
  Serious: Yes (Hospitalization)
  Sender: FDA-Public Use
  Company Number: JP-DSJP-DSJ-2017-118324

PATIENT

DRUGS (25)
  1. LICKLE [Concomitant]
     Active Substance: ISOLEUCINE\LEUCINE\VALINE
     Dosage: 4.74G/DAY
     Route: 048
     Dates: start: 20161026
  2. NITROPEN [Concomitant]
     Active Substance: NITROGLYCERIN
     Dosage: 0.3 MG, UNK
     Route: 048
  3. LIVACT                             /00847901/ [Concomitant]
     Active Substance: ISOLEUCINE\LEUCINE\VALINE
     Dosage: 12.45G/WEEK
     Route: 048
     Dates: start: 20160524, end: 20170227
  4. CRESTOR [Concomitant]
     Active Substance: ROSUVASTATIN CALCIUM
     Dosage: 5MG/DAY
     Route: 048
     Dates: end: 20160912
  5. MEXILETINE HYDROCHLORIDE. [Concomitant]
     Active Substance: MEXILETINE HYDROCHLORIDE
     Dosage: 200MG/DAY
     Route: 048
     Dates: start: 20160711
  6. URSODEOXYCHOLIC ACID [Concomitant]
     Active Substance: URSODIOL
     Dosage: 600MG/DAY
     Route: 048
  7. SELARA [Concomitant]
     Active Substance: EPLERENONE
     Dosage: 50MG/DAY
     Route: 048
  8. TRANEXAMIC ACID. [Concomitant]
     Active Substance: TRANEXAMIC ACID
     Dosage: 750MG/DAY
     Route: 048
     Dates: start: 20160323, end: 20160817
  9. EDOXABAN [Suspect]
     Active Substance: EDOXABAN TOSYLATE
     Indication: ATRIAL FIBRILLATION
     Dosage: 30 MG, QD
     Route: 048
     Dates: start: 20160324
  10. FEBURIC [Concomitant]
     Active Substance: FEBUXOSTAT
     Dosage: 10MG/DAY
     Route: 048
     Dates: end: 20160912
  11. FEBURIC [Concomitant]
     Active Substance: FEBUXOSTAT
     Dosage: 20MG/DAY
     Route: 048
     Dates: start: 20160913
  12. MICARDIS [Concomitant]
     Active Substance: TELMISARTAN
     Dosage: 20MG/DAY
     Route: 048
  13. NICORANDIL [Concomitant]
     Active Substance: NICORANDIL
     Dosage: 15MG/DAY
     Route: 048
  14. FUROSEMIDE. [Concomitant]
     Active Substance: FUROSEMIDE
     Dosage: 40MG/DAY
     Route: 048
     Dates: end: 20160912
  15. LUNESTA [Concomitant]
     Active Substance: ESZOPICLONE
     Dosage: 2 MG, AS NEEDED
     Route: 048
     Dates: end: 20161120
  16. HEPARIN [Concomitant]
     Active Substance: HEPARIN SODIUM
     Dosage: 10000 IU/DAY
     Route: 042
     Dates: start: 20170321, end: 20170321
  17. GOREISAN                           /08015701/ [Concomitant]
     Active Substance: HERBALS
     Dosage: 7.5G/DAY
     Route: 048
     Dates: start: 20160310, end: 20160817
  18. BARACLUDE [Concomitant]
     Active Substance: ENTECAVIR
     Dosage: 0.5MG/WEEK
     Route: 048
  19. LICKLE [Concomitant]
     Active Substance: ISOLEUCINE\LEUCINE\VALINE
     Dosage: 14.22G/DAY
     Route: 048
     Dates: end: 20161025
  20. ZOLPIDEM TARTRATE. [Concomitant]
     Active Substance: ZOLPIDEM TARTRATE
     Dosage: 5 MG, AS NEEDED
     Route: 048
     Dates: start: 20161121
  21. MEXILETINE HYDROCHLORIDE. [Concomitant]
     Active Substance: MEXILETINE HYDROCHLORIDE
     Indication: ATRIAL FIBRILLATION
     Dosage: 300MG/DAY
     Route: 048
     Dates: end: 20160710
  22. AZOSEMIDE [Concomitant]
     Active Substance: AZOSEMIDE
     Dosage: 60MG/DAY
     Route: 048
     Dates: start: 20160913
  23. WARFARIN                           /00014803/ [Concomitant]
     Active Substance: WARFARIN
     Dosage: 1MG/DAY
     Route: 048
     Dates: end: 20160323
  24. NEXIUM [Concomitant]
     Active Substance: ESOMEPRAZOLE MAGNESIUM
     Dosage: 20MG/DAY
     Route: 048
  25. BENZBROMARONE [Concomitant]
     Active Substance: BENZBROMARONE
     Dosage: 25MG/DAY
     Route: 048
     Dates: end: 20160712

REACTIONS (4)
  - Blood uric acid increased [Not Recovered/Not Resolved]
  - Occult blood positive [Not Recovered/Not Resolved]
  - Anaemia [Recovering/Resolving]
  - Cardiac failure acute [Recovering/Resolving]

NARRATIVE: CASE EVENT DATE: 20160823
